FAERS Safety Report 23970658 (Version 1)
Quarter: 2024Q2

REPORT INFORMATION
  Report Type: Spontaneous
  Country: CN (occurrence: CN)
  Receive Date: 20240613
  Receipt Date: 20240613
  Transmission Date: 20240716
  Serious: Yes (Other)
  Sender: FDA-Public Use
  Company Number: None

PATIENT
  Age: 54 Year
  Sex: Female
  Weight: 55 kg

DRUGS (1)
  1. MANNITOL [Suspect]
     Active Substance: MANNITOL
     Indication: Peripheral swelling
     Dosage: 250 ML, ONCE DAILY (DOSAGE FORM: INJECTION)
     Route: 041
     Dates: start: 20240514, end: 20240514

REACTIONS (3)
  - Heart rate increased [Recovering/Resolving]
  - Seizure [Recovering/Resolving]
  - Blood pressure increased [Recovering/Resolving]

NARRATIVE: CASE EVENT DATE: 20240514
